FAERS Safety Report 17977366 (Version 1)
Quarter: 2020Q3

REPORT INFORMATION
  Report Type: Spontaneous
  Country: SK (occurrence: SK)
  Receive Date: 20200703
  Receipt Date: 20200703
  Transmission Date: 20201103
  Serious: Yes (Other)
  Sender: FDA-Public Use
  Company Number: NVSC2020SK158907

PATIENT
  Age: 38 Year
  Sex: Female

DRUGS (19)
  1. CANAKINUMAB. [Suspect]
     Active Substance: CANAKINUMAB
     Dosage: 150 MG
     Route: 065
     Dates: start: 20180221
  2. CANAKINUMAB. [Suspect]
     Active Substance: CANAKINUMAB
     Dosage: 300 MG
     Route: 065
     Dates: start: 20181210
  3. CANAKINUMAB. [Suspect]
     Active Substance: CANAKINUMAB
     Dosage: 300 MG
     Route: 065
     Dates: start: 20190204
  4. CANAKINUMAB. [Suspect]
     Active Substance: CANAKINUMAB
     Dosage: 300 MG
     Route: 065
     Dates: start: 20191112
  5. CANAKINUMAB. [Suspect]
     Active Substance: CANAKINUMAB
     Dosage: 300 MG
     Route: 065
     Dates: start: 20200623
  6. CANAKINUMAB. [Suspect]
     Active Substance: CANAKINUMAB
     Dosage: 300 MG
     Route: 065
     Dates: start: 20200303
  7. CANAKINUMAB. [Suspect]
     Active Substance: CANAKINUMAB
     Indication: AUTOINFLAMMATORY DISEASE
     Dosage: 300 MG
     Route: 065
     Dates: start: 20180221
  8. CANAKINUMAB. [Suspect]
     Active Substance: CANAKINUMAB
     Dosage: 300 MG
     Route: 065
     Dates: start: 20180612
  9. CANAKINUMAB. [Suspect]
     Active Substance: CANAKINUMAB
     Dosage: 300 MG
     Route: 065
     Dates: start: 20180808
  10. CANAKINUMAB. [Suspect]
     Active Substance: CANAKINUMAB
     Dosage: 300 MG
     Route: 065
     Dates: start: 20190723
  11. CANAKINUMAB. [Suspect]
     Active Substance: CANAKINUMAB
     Dosage: 300 MG
     Route: 065
     Dates: start: 20190916
  12. CANAKINUMAB. [Suspect]
     Active Substance: CANAKINUMAB
     Dosage: 300 MG
     Route: 065
     Dates: start: 20200107
  13. CANAKINUMAB. [Suspect]
     Active Substance: CANAKINUMAB
     Dosage: 300 MG
     Route: 065
     Dates: start: 20200428
  14. CANAKINUMAB. [Suspect]
     Active Substance: CANAKINUMAB
     Dosage: 300 MG
     Route: 065
     Dates: start: 20200623
  15. CANAKINUMAB. [Suspect]
     Active Substance: CANAKINUMAB
     Dosage: 300 MG
     Route: 065
     Dates: start: 20180416
  16. CANAKINUMAB. [Suspect]
     Active Substance: CANAKINUMAB
     Dosage: 150 MG (DUE TO ATTACK)
     Route: 065
     Dates: start: 20180227
  17. CANAKINUMAB. [Suspect]
     Active Substance: CANAKINUMAB
     Dosage: 300 MG
     Route: 065
     Dates: start: 20181016
  18. CANAKINUMAB. [Suspect]
     Active Substance: CANAKINUMAB
     Dosage: 300 MG
     Route: 065
     Dates: start: 20190528
  19. CANAKINUMAB. [Suspect]
     Active Substance: CANAKINUMAB
     Dosage: 300 MG
     Route: 065
     Dates: start: 20190402

REACTIONS (8)
  - Neutropenia [Unknown]
  - Parvovirus infection [Unknown]
  - Upper respiratory tract infection [Recovered/Resolved]
  - Weight increased [Unknown]
  - Leukopenia [Unknown]
  - Sinusitis [Recovered/Resolved]
  - Hypersomnia [Unknown]
  - Fatigue [Unknown]
